FAERS Safety Report 8335391-2 (Version None)
Quarter: 2012Q2

REPORT INFORMATION
  Report Type: 
  Country: None (occurrence: None)
  Receive Date: 20120503
  Receipt Date: 20120426
  Transmission Date: 20120825
  Serious: Yes (Disabling)
  Sender: FDA-Public Use
  Company Number: US-MERCK-1103USA03605

PATIENT
  Age: 32 Year
  Sex: Male

DRUGS (4)
  1. PROPECIA [Suspect]
     Indication: HAIR TRANSPLANT
     Route: 048
     Dates: start: 20070614, end: 20071019
  2. FINASTERIDE [Suspect]
     Indication: HAIR TRANSPLANT
     Route: 048
     Dates: start: 20081027, end: 20100702
  3. FINASTERIDE [Suspect]
     Indication: ALOPECIA
     Route: 048
     Dates: start: 20081027, end: 20100702
  4. HEMP [Concomitant]
     Route: 065

REACTIONS (10)
  - THERAPEUTIC RESPONSE DECREASED [None]
  - ANXIETY [None]
  - DEPRESSION [None]
  - STRESS [None]
  - LIBIDO DECREASED [None]
  - EMOTIONAL DISTRESS [None]
  - FATIGUE [None]
  - WRONG TECHNIQUE IN DRUG USAGE PROCESS [None]
  - ALOPECIA [None]
  - INTENTIONAL DRUG MISUSE [None]
